FAERS Safety Report 8175972-2 (Version None)
Quarter: 2012Q1

REPORT INFORMATION
  Report Type: 
  Country: None (occurrence: None)
  Receive Date: 20120301
  Receipt Date: 20120224
  Transmission Date: 20120608
  Serious: No
  Sender: FDA-Public Use
  Company Number: US-PFIZER INC-2009309831

PATIENT
  Sex: Male

DRUGS (2)
  1. SUTENT [Suspect]
     Dosage: 25 MG, DAILY X 21 DAYS EVERY 28 DAYS
     Dates: start: 20091224
  2. SUTENT [Suspect]
     Indication: METASTATIC RENAL CELL CARCINOMA
     Dosage: 25 MG, DAILY X 28 DAYS EVERY 42 DAYS
     Dates: start: 20091001

REACTIONS (8)
  - LACRIMATION INCREASED [None]
  - GLOSSODYNIA [None]
  - DYSPNOEA EXERTIONAL [None]
  - DISEASE PROGRESSION [None]
  - HICCUPS [None]
  - DECREASED APPETITE [None]
  - RENAL CELL CARCINOMA [None]
  - FATIGUE [None]
